FAERS Safety Report 8486417-7 (Version None)
Quarter: 2012Q3

REPORT INFORMATION
  Report Type: 
  Country: None (occurrence: None)
  Receive Date: 20120703
  Receipt Date: 20120628
  Transmission Date: 20120928
  Serious: Yes (Other)
  Sender: FDA-Public Use
  Company Number: US-PFIZER INC-2012156122

PATIENT
  Sex: Male

DRUGS (4)
  1. VIAGRA [Suspect]
     Dosage: 100 MG, 1/2 TO 1 TAB(S) DAILY 30-60 MIN PRIOR TO INTERCOURSE
     Route: 048
  2. ZOLOFT [Suspect]
     Indication: DEPRESSION
     Dosage: 50 MG, 1 TAB(S) DAILY
     Route: 048
  3. VARDENAFIL [Concomitant]
     Dosage: 20 MG, UNK
  4. METHADONE HCL [Suspect]
     Indication: PAIN
     Dosage: 10 MG, 2 1/2 TABS Q6H
     Route: 048

REACTIONS (4)
  - PAIN [None]
  - FATIGUE [None]
  - NECK PAIN [None]
  - BACK PAIN [None]
